FAERS Safety Report 24146507 (Version 1)
Quarter: 2024Q3

REPORT INFORMATION
  Report Type: Spontaneous
  Country: ES (occurrence: ES)
  Receive Date: 20240729
  Receipt Date: 20240729
  Transmission Date: 20241017
  Serious: Yes (Other)
  Sender: ASTELLAS
  Company Number: ES-ASTELLAS-2024EU007367

PATIENT
  Age: 38 Year
  Sex: Female

DRUGS (4)
  1. GILTERITINIB [Suspect]
     Active Substance: GILTERITINIB
     Indication: Acute myeloid leukaemia
     Route: 065
     Dates: start: 202307
  2. GILTERITINIB [Suspect]
     Active Substance: GILTERITINIB
     Route: 065
  3. GILTERITINIB [Suspect]
     Active Substance: GILTERITINIB
     Route: 065
  4. GILTERITINIB [Suspect]
     Active Substance: GILTERITINIB
     Route: 065

REACTIONS (4)
  - Neutrophilic dermatosis [Unknown]
  - Hepatic cytolysis [Unknown]
  - Cholestasis [Unknown]
  - Neutropenia [Unknown]
